FAERS Safety Report 5518289-4 (Version None)
Quarter: 2007Q4

REPORT INFORMATION
  Report Type: 
  Country: None (occurrence: None)
  Receive Date: 20071113
  Receipt Date: 20071113
  Transmission Date: 20080405
  Serious: No
  Sender: FDA-Public Use
  Company Number: None

PATIENT
  Age: 64 Year
  Sex: Male
  Weight: 95.2554 kg

DRUGS (1)
  1. VIAGRA [Suspect]
     Dates: start: 20011108, end: 20011118

REACTIONS (2)
  - DEAFNESS [None]
  - VISION BLURRED [None]
